FAERS Safety Report 6974997-X (Version None)
Quarter: 2010Q3

REPORT INFORMATION
  Report Type: 
  Country: None (occurrence: None)
  Receive Date: 20100910
  Receipt Date: 20090120
  Transmission Date: 20110219
  Serious: No
  Sender: FDA-Public Use
  Company Number: US-WYE-H07791709

PATIENT
  Sex: Female
  Weight: 88.53 kg

DRUGS (4)
  1. PRISTIQ [Suspect]
     Indication: DEPRESSION
     Route: 048
     Dates: start: 20090112
  2. PRISTIQ [Suspect]
     Indication: ANXIETY
  3. REMERON [Concomitant]
  4. ATENOLOL [Concomitant]

REACTIONS (5)
  - ANXIETY [None]
  - FEELING ABNORMAL [None]
  - NERVOUSNESS [None]
  - TINNITUS [None]
  - VISION BLURRED [None]
